FAERS Safety Report 8651613 (Version 3)
Quarter: 2013Q2

REPORT INFORMATION
  Report Type: Spontaneous
  Country: US (occurrence: US)
  Receive Date: 20120706
  Receipt Date: 20130417
  Transmission Date: 20140414
  Serious: Yes (Hospitalization, Disabling)
  Sender: FDA-Public Use
  Company Number: US-BAYER-2012-065080

PATIENT
  Age: 43 Year
  Sex: Female
  Weight: 58.96 kg

DRUGS (4)
  1. YAZ [Suspect]
     Indication: PREMENSTRUAL SYNDROME
     Dosage: UNK
     Dates: start: 2006, end: 2009
  2. GIANVI [Suspect]
     Indication: PREMENSTRUAL SYNDROME
     Dosage: UNK
     Dates: start: 201009, end: 201103
  3. HYDROCODONE W/APAP [Concomitant]
     Dosage: 7.5/650 MG
  4. PROMETHAZINE [Concomitant]
     Dosage: 25 MG, UNK

REACTIONS (8)
  - Pulmonary embolism [None]
  - Deep vein thrombosis [Recovered/Resolved]
  - Pain [None]
  - Anxiety [None]
  - Injury [None]
  - Anhedonia [None]
  - Deformity [None]
  - Off label use [None]
